FAERS Safety Report 10157749 (Version 2)
Quarter: 2014Q2

REPORT INFORMATION
  Report Type: Spontaneous
  Country: US (occurrence: US)
  Receive Date: 20140507
  Receipt Date: 20140519
  Transmission Date: 20141212
  Serious: Yes (Other)
  Sender: FDA-Public Use
  Company Number: US-009507513-1405USA001130

PATIENT
  Age: 62 Year
  Sex: Female

DRUGS (1)
  1. TICE BCG LIVE [Suspect]
     Indication: BLADDER CANCER

REACTIONS (4)
  - Aortic aneurysm [Unknown]
  - Mycotic aneurysm [Unknown]
  - Surgery [Unknown]
  - Back pain [Unknown]
